FAERS Safety Report 9922651 (Version 3)
Quarter: 2014Q2

REPORT INFORMATION
  Report Type: Spontaneous
  Country: JP (occurrence: JP)
  Receive Date: 20140225
  Receipt Date: 20140417
  Transmission Date: 20141212
  Serious: Yes (Hospitalization)
  Sender: FDA-Public Use
  Company Number: JP-ASTRAZENECA-2014SE11884

PATIENT
  Age: 30603 Day
  Sex: Female

DRUGS (2)
  1. CRESTOR [Suspect]
     Indication: HYPERLIPIDAEMIA
     Route: 048
     Dates: start: 20130130, end: 20130227
  2. PLAVIX [Suspect]
     Route: 048
     Dates: start: 20130130, end: 20130227

REACTIONS (3)
  - Scleritis [Recovering/Resolving]
  - Decreased appetite [Recovered/Resolved]
  - Pneumonia [Recovering/Resolving]
